FAERS Safety Report 9021439 (Version 1)
Quarter: 2013Q1

REPORT INFORMATION
  Report Type: Spontaneous
  Country: US (occurrence: US)
  Receive Date: 20130119
  Receipt Date: 20130119
  Transmission Date: 20140127
  Serious: No
  Sender: FDA-Public Use
  Company Number: US-009507513-1301USA007806

PATIENT
  Age: 17 Year
  Sex: Female
  Weight: 61.22 kg

DRUGS (1)
  1. IMPLANON [Suspect]
     Indication: CONTRACEPTION
     Dosage: UNK,EVERY 3 YEARS
     Route: 059
     Dates: start: 20120229

REACTIONS (6)
  - Unintended pregnancy [Unknown]
  - Amenorrhoea [Unknown]
  - Menorrhagia [Unknown]
  - Menstruation delayed [Unknown]
  - Nausea [Unknown]
  - Fatigue [Unknown]
